FAERS Safety Report 8906471 (Version 1)
Quarter: 2012Q4

REPORT INFORMATION
  Report Type: Spontaneous
  Country: US (occurrence: None)
  Receive Date: 20121113
  Receipt Date: 20121113
  Transmission Date: 20130627
  Serious: No
  Sender: FDA-Public Use
  Company Number: None

PATIENT
  Age: 74 Year
  Sex: Female
  Weight: 72.58 kg

DRUGS (1)
  1. SERTRALINE [Suspect]
     Dates: start: 20120728, end: 20120801

REACTIONS (5)
  - Headache [None]
  - Throat irritation [None]
  - Heart rate increased [None]
  - Muscular weakness [None]
  - Eye disorder [None]
